FAERS Safety Report 4772751-0 (Version None)
Quarter: 2005Q3

REPORT INFORMATION
  Report Type: 
  Country: None (occurrence: None)
  Receive Date: 20050919
  Receipt Date: 20050708
  Transmission Date: 20060218
  Serious: Yes (Hospitalization)
  Sender: FDA-Public Use
  Company Number: AU-ROCHE-410160

PATIENT
  Age: 71 Year
  Sex: Male
  Weight: 90.7 kg

DRUGS (8)
  1. INTERFERON ALFA-2A [Suspect]
     Indication: METASTATIC RENAL CELL CARCINOMA
     Route: 058
     Dates: start: 20050623, end: 20050707
  2. INTERFERON ALFA-2A [Suspect]
     Route: 058
     Dates: start: 20050728, end: 20050826
  3. BLINDED BEVACIZUMAB [Suspect]
     Indication: METASTATIC RENAL CELL CARCINOMA
     Route: 042
     Dates: start: 20050623, end: 20050707
  4. BLINDED BEVACIZUMAB [Suspect]
     Route: 042
     Dates: start: 20050728, end: 20050826
  5. PRAMIN [Concomitant]
     Dates: start: 20050630, end: 20050706
  6. PARACETAMOL [Concomitant]
     Dates: start: 20050625, end: 20050705
  7. WARFARIN [Concomitant]
     Dates: start: 20050712
  8. HALOPERIDOL [Concomitant]
     Dates: start: 20050815, end: 20050823

REACTIONS (5)
  - DISEASE PROGRESSION [None]
  - DRUG TOXICITY [None]
  - DYSPNOEA [None]
  - FATIGUE [None]
  - PULMONARY EMBOLISM [None]
